FAERS Safety Report 9628613 (Version 3)
Quarter: 2014Q1

REPORT INFORMATION
  Report Type: Report from Study
  Country: BE (occurrence: BE)
  Receive Date: 20131017
  Receipt Date: 20140306
  Transmission Date: 20141002
  Serious: Yes (Hospitalization)
  Sender: FDA-Public Use
  Company Number: BE-JNJFOC-20131006255

PATIENT
  Age: 17 Year
  Sex: Male
  Weight: 81.7 kg

DRUGS (3)
  1. REMICADE [Suspect]
     Indication: CROHN^S DISEASE
     Route: 042
     Dates: start: 20090904
  2. REMICADE [Suspect]
     Indication: CROHN^S DISEASE
     Route: 042
     Dates: end: 20140203
  3. REMICADE [Suspect]
     Indication: CROHN^S DISEASE
     Route: 042
     Dates: start: 20120312, end: 20130820

REACTIONS (4)
  - Sacroiliitis [Recovered/Resolved with Sequelae]
  - Crohn^s disease [Unknown]
  - Abdominal pain [Unknown]
  - Arthralgia [Unknown]
